FAERS Safety Report 6143148-6 (Version None)
Quarter: 2009Q2

REPORT INFORMATION
  Report Type: 
  Country: None (occurrence: None)
  Receive Date: 20090403
  Receipt Date: 20090324
  Transmission Date: 20091009
  Serious: Yes (Hospitalization, Disabling)
  Sender: FDA-Public Use
  Company Number: FR-ABBOTT-09P-056-0564903-00

PATIENT
  Age: 26 Year
  Sex: Female

DRUGS (1)
  1. ENANTONE 11.25 MG [Suspect]
     Indication: ENDOMETRIOSIS
     Route: 030
     Dates: start: 20070101, end: 20070401

REACTIONS (3)
  - ASTHENIA [None]
  - HEADACHE [None]
  - NECK PAIN [None]
